FAERS Safety Report 8262569-9 (Version None)
Quarter: 2012Q2

REPORT INFORMATION
  Report Type: 
  Country: None (occurrence: None)
  Receive Date: 20120405
  Receipt Date: 20120404
  Transmission Date: 20120825
  Serious: No
  Sender: FDA-Public Use
  Company Number: US-PFIZER INC-2012085614

PATIENT
  Sex: Female

DRUGS (1)
  1. XANAX XR [Suspect]
     Indication: ANXIETY
     Dosage: 0.5 MG, 2X/DAY
     Dates: start: 20120403

REACTIONS (2)
  - ANXIETY [None]
  - INSOMNIA [None]
